FAERS Safety Report 11435988 (Version 1)
Quarter: 2015Q3

REPORT INFORMATION
  Report Type: Spontaneous
  Country: US (occurrence: US)
  Receive Date: 20150821
  Receipt Date: 20150821
  Transmission Date: 20151125
  Serious: No
  Sender: FDA-Public Use
  Company Number: US-ELI_LILLY_AND_COMPANY-US201402003802

PATIENT
  Sex: Female

DRUGS (4)
  1. HUMULIN N [Suspect]
     Active Substance: INSULIN HUMAN
     Indication: TYPE 2 DIABETES MELLITUS
     Dosage: 10 DF, EACH MORNING
     Route: 065
     Dates: start: 2012
  2. INSULIN HUMAN [Suspect]
     Active Substance: INSULIN HUMAN
     Dosage: 8 DF, EACH EVENING
     Route: 065
     Dates: start: 2012
  3. HUMULIN N [Suspect]
     Active Substance: INSULIN HUMAN
     Dosage: 4 U, EACH EVENING
     Route: 065
     Dates: start: 2012
  4. INSULIN HUMAN [Suspect]
     Active Substance: INSULIN HUMAN
     Indication: TYPE 2 DIABETES MELLITUS
     Dosage: 10 DF, BID
     Route: 065
     Dates: start: 2012

REACTIONS (5)
  - Blood glucose increased [Unknown]
  - Vitreous floaters [Unknown]
  - Incorrect product storage [Unknown]
  - Vision blurred [Unknown]
  - Blood glucose decreased [Unknown]

NARRATIVE: CASE EVENT DATE: 201402
